FAERS Safety Report 9582214 (Version 1)
Quarter: 2013Q4

REPORT INFORMATION
  Report Type: Spontaneous
  Country: US (occurrence: US)
  Receive Date: 20131002
  Receipt Date: 20131002
  Transmission Date: 20140711
  Serious: No
  Sender: FDA-Public Use
  Company Number: US-AMGEN-USASP2013039471

PATIENT
  Age: 29 Year
  Sex: Female
  Weight: 136.51 kg

DRUGS (10)
  1. ENBREL [Suspect]
     Indication: PRODUCT USED FOR UNKNOWN INDICATION
     Dosage: 50 MG, 2 TIMES/WK
     Route: 065
  2. RANITIDINE [Concomitant]
     Dosage: 75 MG, UNK
  3. DOCUSATE SOD [Concomitant]
     Dosage: 100 MG, UNK
  4. INDOMETHACIN                       /00003801/ [Concomitant]
     Dosage: 25 MG, UNK
  5. IRON [Concomitant]
     Dosage: UNK
  6. CALCIUM 600 [Concomitant]
     Dosage: UNK
  7. CYMBALTA [Concomitant]
     Dosage: 20 MG, UNK
  8. FIBER LAX [Concomitant]
     Dosage: UNK
  9. MULTIVITAMINS, PLAIN [Concomitant]
     Dosage: UNK
  10. HYDROCODONE/HOMATROPINE [Concomitant]
     Dosage: 5-1.5/5, UNK, UNK

REACTIONS (3)
  - Injection site erythema [Unknown]
  - Injection site pruritus [Unknown]
  - Injection site rash [Unknown]
